FAERS Safety Report 22197876 (Version 2)
Quarter: 2023Q2

REPORT INFORMATION
  Report Type: Report from Study
  Country: US (occurrence: US)
  Receive Date: 20230411
  Receipt Date: 20230510
  Transmission Date: 20230721
  Serious: Yes (Hospitalization)
  Sender: FDA-Public Use
  Company Number: US-ELI_LILLY_AND_COMPANY-US202304001503

PATIENT
  Sex: Female
  Weight: 113.83 kg

DRUGS (1)
  1. TRULICITY [Suspect]
     Active Substance: DULAGLUTIDE
     Indication: Diabetes mellitus
     Dosage: 0.75 MG, WEEKLY (1/W)
     Route: 065
     Dates: start: 20230314, end: 20230328

REACTIONS (6)
  - Acute kidney injury [Unknown]
  - Acidosis [Unknown]
  - Azotaemia [Unknown]
  - Dehydration [Unknown]
  - Renal failure [Recovered/Resolved]
  - Pancreatitis [Recovered/Resolved]
